FAERS Safety Report 5314334-X (Version None)
Quarter: 2007Q2

REPORT INFORMATION
  Report Type: 
  Country: None (occurrence: None)
  Receive Date: 20070502
  Receipt Date: 20070424
  Transmission Date: 20071010
  Serious: Yes (Other)
  Sender: FDA-Public Use
  Company Number: US-JNJFOC-20070405879

PATIENT
  Sex: Female
  Weight: 68.49 kg

DRUGS (6)
  1. DURAGESIC-100 [Suspect]
     Indication: BACK PAIN
     Route: 062
  2. ASACOL [Concomitant]
     Indication: COLITIS
     Route: 048
  3. PERCOCET [Concomitant]
     Indication: BREAKTHROUGH PAIN
     Route: 048
  4. PREMARIN [Concomitant]
     Indication: HORMONE REPLACEMENT THERAPY
     Route: 048
  5. ZELNORM [Concomitant]
     Indication: COLITIS
     Route: 048
  6. BENTYL [Concomitant]
     Indication: COLITIS
     Route: 048

REACTIONS (2)
  - CARDIAC FLUTTER [None]
  - WRONG TECHNIQUE IN DRUG USAGE PROCESS [None]
